FAERS Safety Report 18708752 (Version 7)
Quarter: 2022Q1

REPORT INFORMATION
  Report Type: Spontaneous
  Country: US (occurrence: US)
  Receive Date: 20210106
  Receipt Date: 20220124
  Transmission Date: 20220424
  Serious: No
  Sender: FDA-Public Use
  Company Number: US-PFIZER INC-2021005393

PATIENT
  Age: 66 Year

DRUGS (1)
  1. ESTRING [Suspect]
     Active Substance: ESTRADIOL
     Dosage: UNK (QUANTITY FOR 90 DAYS: 4 RING - ONE RING PER 90 DAYS)

REACTIONS (7)
  - Tinnitus [Unknown]
  - Tendonitis [Unknown]
  - Hypoacusis [Unknown]
  - Nervousness [Unknown]
  - Eye infection [Unknown]
  - Lacrimation increased [Unknown]
  - Vulvovaginal dryness [Unknown]

NARRATIVE: CASE EVENT DATE: 20210101
